FAERS Safety Report 5347401-5 (Version None)
Quarter: 2007Q2

REPORT INFORMATION
  Report Type: 
  Country: None (occurrence: None)
  Receive Date: 20070606
  Receipt Date: 20070531
  Transmission Date: 20071010
  Serious: Yes (Other)
  Sender: FDA-Public Use
  Company Number: US-ASTRAZENECA-2005UW14338

PATIENT
  Age: 51 Year
  Sex: Female

DRUGS (1)
  1. ARIMIDEX [Suspect]
     Indication: BREAST CANCER FEMALE
     Route: 048
     Dates: start: 20050101

REACTIONS (5)
  - ARTHROPATHY [None]
  - GAIT DISTURBANCE [None]
  - JOINT STIFFNESS [None]
  - MYALGIA [None]
  - WEIGHT INCREASED [None]
